FAERS Safety Report 14302077 (Version 1)
Quarter: 2017Q4

REPORT INFORMATION
  Report Type: Spontaneous
  Country: US (occurrence: US)
  Receive Date: 20171219
  Receipt Date: 20171219
  Transmission Date: 20180321
  Serious: No
  Sender: FDA-Public Use
  Company Number: US-RECKITT BENCKISER HEALTHCARE INT LIMITED-RB-88271-2017

PATIENT
  Age: 4 Year
  Sex: Male

DRUGS (1)
  1. DELSYM [Suspect]
     Active Substance: DEXTROMETHORPHAN
     Indication: PRODUCT USED FOR UNKNOWN INDICATION
     Dosage: TOOK 2.5 ML AT 8 AM, 4 HRS AGO, AND AGAIN 15 MIN PRIOR TO REPORTING.
     Route: 065
     Dates: start: 20170101

REACTIONS (7)
  - Unevaluable event [Recovered/Resolved]
  - Drug administered to patient of inappropriate age [Recovered/Resolved]
  - Fatigue [Recovered/Resolved]
  - Agitation [Not Recovered/Not Resolved]
  - Overdose [Recovered/Resolved]
  - Drug ineffective [Not Recovered/Not Resolved]
  - Somnolence [Recovered/Resolved]

NARRATIVE: CASE EVENT DATE: 20170101
